FAERS Safety Report 6249955-3 (Version None)
Quarter: 2009Q2

REPORT INFORMATION
  Report Type: 
  Country: None (occurrence: None)
  Receive Date: 20090625
  Receipt Date: 20090612
  Transmission Date: 20091009
  Serious: Yes (Other)
  Sender: FDA-Public Use
  Company Number: 09-000971

PATIENT
  Age: 50 Year
  Sex: Female

DRUGS (1)
  1. TACLONEX [Suspect]
     Dosage: TOPICAL
     Route: 061
     Dates: start: 20090101

REACTIONS (3)
  - BLISTER [None]
  - RETINAL DISORDER [None]
  - VISUAL IMPAIRMENT [None]
